FAERS Safety Report 4767825-4 (Version None)
Quarter: 2005Q3

REPORT INFORMATION
  Report Type: 
  Country: None (occurrence: None)
  Receive Date: 20050912
  Receipt Date: 20050831
  Transmission Date: 20060218
  Serious: Yes (Death, Life-Threatening, Other)
  Sender: FDA-Public Use
  Company Number: 2005122010

PATIENT
  Age: 53 Year
  Sex: Male
  Weight: 114.3065 kg

DRUGS (10)
  1. ACCUPRIL [Suspect]
     Indication: HYPERTENSION
     Dosage: 20 MG (20 MG, 1 IN 1 D)
     Dates: start: 20030821
  2. HYDROCHLOROTHIAZIDE [Suspect]
     Indication: HYPERTENSION
     Dosage: 12.5 MG (25 MG, 1 IN 1 D)
     Dates: start: 20050828
  3. CLOZAPINE [Suspect]
     Indication: SCHIZOPHRENIA
     Dosage: 400 MG (400 MG, 1 IN 1 D)
     Dates: start: 19980401, end: 20030901
  4. DEPAKOTE [Concomitant]
  5. PIROXICAM [Concomitant]
  6. OXYBUTYNIN CHLORIDE [Concomitant]
  7. BISACODYL (BISACODYL) [Concomitant]
  8. BACLOFEN [Concomitant]
  9. MIRALAX [Concomitant]
  10. LACTULOSE [Concomitant]

REACTIONS (5)
  - ACCIDENTAL DEATH [None]
  - CONVULSION [None]
  - DRUG INTERACTION [None]
  - DRUG LEVEL INCREASED [None]
  - DRUG TOXICITY [None]
